FAERS Safety Report 9749451 (Version 1)
Quarter: 2013Q4

REPORT INFORMATION
  Report Type: Spontaneous
  Country: GB (occurrence: GB)
  Receive Date: 20131212
  Receipt Date: 20131212
  Transmission Date: 20140711
  Serious: Yes (Disabling)
  Sender: FDA-Public Use
  Company Number: ALCN2013GB006132

PATIENT
  Age: 92 Year
  Sex: Female
  Weight: 47 kg

DRUGS (15)
  1. CIPROFLOXACIN [Suspect]
     Dosage: UNK
  2. AMITRIPTYLINE HYDROCHLORIDE [Concomitant]
     Dosage: UNK
     Dates: start: 20120326
  3. BENDROFLUMETHIAZIDE [Concomitant]
     Dosage: UNK
     Dates: start: 20120326
  4. BRIMONIDINE TARTRATE [Concomitant]
     Dosage: UNK
     Dates: start: 20120326
  5. CAPSAICIN [Concomitant]
     Dosage: UNK
     Dates: start: 20121210
  6. CARBOMER [Concomitant]
     Dosage: UNK
     Dates: start: 20120326
  7. DIGOXIN [Concomitant]
     Dosage: UNK
     Dates: start: 20120326
  8. OMEPRAZOLE [Concomitant]
     Dosage: UNK
     Dates: start: 20120326
  9. PREDNISOLONE [Concomitant]
     Dosage: UNK
     Dates: start: 20120326
  10. PREGABALIN [Concomitant]
     Dosage: UNK
     Dates: start: 20120326
  11. RAMIPRIL [Concomitant]
     Dosage: UNK
     Dates: start: 20120326
  12. RISEDRONATE SODIUM [Concomitant]
     Dosage: UNK
     Dates: start: 20120326
  13. SAFLUTAN [Concomitant]
     Dosage: UNK
     Dates: start: 20120326
  14. TIMOLOL MALEATE [Concomitant]
     Dosage: UNK
     Dates: start: 20120326
  15. TRAMADOL [Concomitant]
     Dosage: UNK
     Dates: start: 20120326

REACTIONS (1)
  - Tendonitis [Not Recovered/Not Resolved]
